FAERS Safety Report 9019818 (Version 2)
Quarter: 2013Q1

REPORT INFORMATION
  Report Type: Report from Study
  Country: DE (occurrence: DE)
  Receive Date: 20130118
  Receipt Date: 20130312
  Transmission Date: 20140127
  Serious: Yes (Hospitalization)
  Sender: FDA-Public Use
  Company Number: DE-BAXTER-2013BAX001323

PATIENT
  Sex: Male

DRUGS (12)
  1. ENDOXAN 1G [Suspect]
     Indication: B-CELL LYMPHOMA
     Route: 042
     Dates: start: 20121002
  2. ENDOXAN 1G [Suspect]
     Route: 042
     Dates: start: 20121228, end: 20121228
  3. RITUXIMAB [Suspect]
     Indication: B-CELL LYMPHOMA
     Route: 042
     Dates: start: 20121001
  4. RITUXIMAB [Suspect]
     Route: 042
     Dates: start: 20121227, end: 20121227
  5. PEGFILGRASTIM [Suspect]
     Indication: B-CELL LYMPHOMA
     Route: 058
     Dates: start: 20121005
  6. PEGFILGRASTIM [Suspect]
     Route: 058
     Dates: start: 20121231, end: 20121231
  7. PREDNISOLONE [Suspect]
     Indication: B-CELL LYMPHOMA
     Route: 048
     Dates: start: 20121002
  8. PREDNISOLONE [Suspect]
     Route: 065
     Dates: start: 20121228, end: 20130101
  9. VINCRISTINE [Suspect]
     Indication: B-CELL LYMPHOMA
     Route: 042
     Dates: start: 20121002
  10. VINCRISTINE [Suspect]
     Route: 042
     Dates: start: 20121228
  11. DOXORUBICIN [Suspect]
     Indication: B-CELL LYMPHOMA
     Route: 042
     Dates: start: 20121002
  12. DOXORUBICIN [Suspect]
     Route: 042
     Dates: start: 20121228, end: 20121228

REACTIONS (1)
  - Bronchitis [Recovered/Resolved]
